FAERS Safety Report 16809411 (Version 10)
Quarter: 2021Q1

REPORT INFORMATION
  Report Type: Report from Study
  Country: US (occurrence: US)
  Receive Date: 20190916
  Receipt Date: 20210201
  Transmission Date: 20210419
  Serious: Yes (Other)
  Sender: FDA-Public Use
  Company Number: PHEH2019US038114

PATIENT
  Age: 52 Year
  Sex: Female

DRUGS (2)
  1. COSENTYX [Suspect]
     Active Substance: SECUKINUMAB
     Indication: PSORIATIC ARTHROPATHY
     Dosage: 150 MG, QMO (Q4W)
     Route: 058
     Dates: start: 20190516
  2. COSENTYX [Suspect]
     Active Substance: SECUKINUMAB
     Dosage: 300 MG, Q4W (INJECT 2 PENS (300 MG) SUBCUTANEOUSLY ONCE EVERY 4 WEEKS)
     Route: 058

REACTIONS (18)
  - Sjogren^s syndrome [Unknown]
  - Influenza [Unknown]
  - Joint stiffness [Unknown]
  - Palpitations [Recovered/Resolved]
  - Bursitis [Unknown]
  - Steroid withdrawal syndrome [Unknown]
  - Procedural complication [Unknown]
  - Hypoglycaemia [Unknown]
  - Viral infection [Recovering/Resolving]
  - Asthenia [Recovered/Resolved]
  - Nervousness [Unknown]
  - Movement disorder [Unknown]
  - Fatigue [Unknown]
  - Psoriatic arthropathy [Unknown]
  - Arthritis [Unknown]
  - Psoriasis [Unknown]
  - Hyperhidrosis [Recovered/Resolved]
  - Drug ineffective [Not Recovered/Not Resolved]

NARRATIVE: CASE EVENT DATE: 20200220
